FAERS Safety Report 7349093-2 (Version None)
Quarter: 2011Q1

REPORT INFORMATION
  Report Type: 
  Country: None (occurrence: None)
  Receive Date: 20110303
  Receipt Date: 20110203
  Transmission Date: 20110831
  Serious: Yes (Other)
  Sender: FDA-Public Use
  Company Number: 54973 AE # 364

PATIENT
  Age: 2 Year
  Sex: Male
  Weight: 16.3295 kg

DRUGS (3)
  1. FURADANTIN FOR UTI [Concomitant]
  2. HYLAND'S COLD 'N COUGH 4 KIDS [Suspect]
     Indication: OROPHARYNGEAL PAIN
     Dosage: 1 TSP (5ML) EVERY 4 HRS
  3. HYLAND'S COLD 'N COUGH 4 KIDS [Suspect]
     Indication: NASAL CONGESTION
     Dosage: 1 TSP (5ML) EVERY 4 HRS

REACTIONS (2)
  - DRUG HYPERSENSITIVITY [None]
  - DYSPNOEA [None]
